FAERS Safety Report 9019110 (Version 1)
Quarter: 2013Q1

REPORT INFORMATION
  Report Type: Spontaneous
  Country: US (occurrence: US)
  Receive Date: 20130118
  Receipt Date: 20130118
  Transmission Date: 20140127
  Serious: No
  Sender: FDA-Public Use
  Company Number: US-PFIZER INC-2013018512

PATIENT
  Age: 61 Year
  Sex: Female
  Weight: 63.04 kg

DRUGS (1)
  1. TOVIAZ [Suspect]
     Indication: HYPERTONIC BLADDER
     Dosage: 4 MG, 1X/DAY
     Route: 048
     Dates: start: 20130114, end: 20130114

REACTIONS (2)
  - Pruritus [Recovered/Resolved]
  - Wrong technique in drug usage process [Unknown]
